FAERS Safety Report 7267669-8 (Version None)
Quarter: 2011Q1

REPORT INFORMATION
  Report Type: 
  Country: None (occurrence: None)
  Receive Date: 20110201
  Receipt Date: 20110125
  Transmission Date: 20110831
  Serious: Yes (Hospitalization)
  Sender: FDA-Public Use
  Company Number: JP-ROCHE-737156

PATIENT
  Sex: Female

DRUGS (11)
  1. ACTEMRA [Suspect]
     Indication: RHEUMATOID ARTHRITIS
     Route: 041
     Dates: start: 20100104, end: 20100922
  2. RHEUMATREX [Suspect]
     Route: 048
     Dates: end: 20101025
  3. ONEALFA [Suspect]
     Indication: OSTEOPOROSIS
     Route: 048
     Dates: start: 20000107
  4. RHEUMATREX [Suspect]
     Indication: RHEUMATOID ARTHRITIS
     Route: 048
     Dates: start: 20090701
  5. LOXONIN [Concomitant]
     Route: 048
     Dates: start: 20000303
  6. MUCOSTA [Concomitant]
     Route: 048
     Dates: start: 20100701
  7. LOXONIN [Concomitant]
     Dosage: FORM: TAPE.
     Route: 062
  8. NEUROTROPIN [Concomitant]
     Route: 048
  9. PULMICORT [Concomitant]
     Dosage: FORM: RESPIRATORY TONIC.
     Route: 055
     Dates: start: 20100927
  10. METHYCOBAL [Concomitant]
     Route: 048
  11. SEREVENT [Concomitant]
     Dosage: FORM: RESPIRATORY TONIC
     Route: 055

REACTIONS (2)
  - OSTEOARTHRITIS [None]
  - INTERSTITIAL LUNG DISEASE [None]
